FAERS Safety Report 4515573-8 (Version None)
Quarter: 2004Q4

REPORT INFORMATION
  Report Type: 
  Country: None (occurrence: None)
  Receive Date: 20041126
  Receipt Date: 20041115
  Transmission Date: 20050328
  Serious: Yes (Death, Other)
  Sender: FDA-Public Use
  Company Number: 2004093197

PATIENT
  Age: 3 Year
  Sex: Male
  Weight: 16.7831 kg

DRUGS (3)
  1. CEREBYX [Suspect]
     Indication: CONVULSION
     Dosage: 288 G (288 MG, ONCE), INTRAVENOUS
     Route: 042
     Dates: start: 20040916, end: 20040916
  2. DIAZEPAM [Suspect]
     Indication: CONVULSION
     Dosage: 30 MG, INTRAVENOUS
     Route: 042
     Dates: start: 20040916, end: 20040916
  3. PANCURONIUM BROMIDE [Suspect]
     Indication: ILL-DEFINED DISORDER
     Dosage: 3.4 MG (3.4 MG), INTRAVENOUS
     Route: 042
     Dates: start: 20040916, end: 20040916

REACTIONS (5)
  - BLOOD PH DECREASED [None]
  - CARDIAC ARREST [None]
  - PCO2 INCREASED [None]
  - PO2 DECREASED [None]
  - SEDATION [None]
